FAERS Safety Report 7887261-1 (Version None)
Quarter: 2011Q4

REPORT INFORMATION
  Report Type: 
  Country: None (occurrence: None)
  Receive Date: 20111102
  Receipt Date: 20110718
  Transmission Date: 20120403
  Serious: Yes (Hospitalization)
  Sender: FDA-Public Use
  Company Number: US-AMGEN-USASP2011036388

PATIENT
  Age: 59 Year
  Sex: Female

DRUGS (2)
  1. ENBREL [Suspect]
     Indication: RHEUMATOID ARTHRITIS
     Dosage: 25 MG, 2 TIMES/WK
     Dates: start: 20020101, end: 20110501
  2. METHOTREXATE [Concomitant]
     Dosage: UNK

REACTIONS (6)
  - TUBERCULIN TEST POSITIVE [None]
  - PNEUMONIA [None]
  - FATIGUE [None]
  - ARTHRALGIA [None]
  - BEDRIDDEN [None]
  - LIVER DISORDER [None]
